FAERS Safety Report 23211676 (Version 1)
Quarter: 2023Q4

REPORT INFORMATION
  Report Type: Spontaneous
  Country: US (occurrence: None)
  Receive Date: 20231121
  Receipt Date: 20231121
  Transmission Date: 20240110
  Serious: Yes (Hospitalization)
  Sender: FDA-Public Use
  Company Number: None

PATIENT
  Age: 61 Year
  Sex: Female

DRUGS (1)
  1. BOSENTAN [Suspect]
     Active Substance: BOSENTAN
     Indication: Pulmonary arterial hypertension
     Dosage: 125MG 2 TIMES A DAY BY MOUTH?
     Route: 048
     Dates: start: 202305

REACTIONS (2)
  - Localised infection [None]
  - Therapy interrupted [None]

NARRATIVE: CASE EVENT DATE: 20230930
